FAERS Safety Report 5022838-2 (Version None)
Quarter: 2006Q2

REPORT INFORMATION
  Report Type: 
  Country: None (occurrence: None)
  Receive Date: 20060426
  Receipt Date: 20060203
  Transmission Date: 20061013
  Serious: Yes (Other)
  Sender: FDA-Public Use
  Company Number: 2006018463

PATIENT
  Age: 78 Year
  Sex: Female
  Weight: 113.3993 kg

DRUGS (6)
  1. LYRICA [Suspect]
     Indication: NEUROPATHY PERIPHERAL
     Dosage: 100 MG (50 MG, 2 IN 1 D), ORAL
     Route: 048
     Dates: start: 20060202
  2. INSULIN [Concomitant]
  3. IMDUR [Concomitant]
  4. BETAPACE [Concomitant]
  5. WARFARIN (WARFARIN) [Concomitant]
  6. VALSARTAN [Concomitant]

REACTIONS (7)
  - ACTIVITIES OF DAILY LIVING IMPAIRED [None]
  - BALANCE DISORDER [None]
  - FATIGUE [None]
  - HYPERSOMNIA [None]
  - SLEEP DISORDER [None]
  - SOMNOLENCE [None]
  - VISUAL BRIGHTNESS [None]
